FAERS Safety Report 10752453 (Version 1)
Quarter: 2015Q1

REPORT INFORMATION
  Report Type: Spontaneous
  Country: US (occurrence: US)
  Receive Date: 20150130
  Receipt Date: 20150130
  Transmission Date: 20150721
  Serious: No
  Sender: FDA-Public Use
  Company Number: US-GLAXOSMITHKLINE-US2014036369

PATIENT
  Age: 43 Year
  Sex: Female

DRUGS (9)
  1. TORADOL [Concomitant]
     Active Substance: KETOROLAC TROMETHAMINE
  2. BENADRYL [Concomitant]
     Active Substance: DIPHENHYDRAMINE HYDROCHLORIDE
  3. PLAQUENIL [Concomitant]
     Active Substance: HYDROXYCHLOROQUINE SULFATE
  4. BENLYSTA [Suspect]
     Active Substance: BELIMUMAB
     Indication: SYSTEMIC LUPUS ERYTHEMATOSUS
     Dosage: 600 MG, CYC
     Route: 041
     Dates: start: 201309
  5. ACTHAR [Concomitant]
     Active Substance: CORTICOTROPIN
  6. TREXIMET [Concomitant]
     Active Substance: NAPROXEN SODIUM\SUMATRIPTAN SUCCINATE
  7. PREDNISONE. [Concomitant]
     Active Substance: PREDNISONE
  8. VITAMIN D [Concomitant]
     Active Substance: CHOLECALCIFEROL
  9. METHOTREXATE [Concomitant]
     Active Substance: METHOTREXATE

REACTIONS (5)
  - Abdominal discomfort [Recovered/Resolved]
  - Headache [Recovered/Resolved]
  - Dizziness [Recovering/Resolving]
  - Fatigue [Recovering/Resolving]
  - Tongue discolouration [Recovered/Resolved]

NARRATIVE: CASE EVENT DATE: 201309
